FAERS Safety Report 6596602-7 (Version None)
Quarter: 2010Q1

REPORT INFORMATION
  Report Type: 
  Country: None (occurrence: None)
  Receive Date: 20100216
  Receipt Date: 20100202
  Transmission Date: 20100710
  Serious: Yes (Hospitalization)
  Sender: FDA-Public Use
  Company Number: 231195J10USA

PATIENT
  Age: 46 Year
  Sex: Female
  Weight: 73 kg

DRUGS (5)
  1. REBIF [Suspect]
     Indication: MULTIPLE SCLEROSIS
     Dosage: 44 MCG, 3 IN 1 WEEKS, SUBCUTANEOUS
     Route: 058
     Dates: start: 20051012
  2. TUMS (CALCIUM CARBONATE) [Suspect]
     Indication: DYSPEPSIA
     Dates: start: 20090101, end: 20090101
  3. BACLOFEN [Concomitant]
  4. XANAX [Concomitant]
  5. CALTRATE PLUS D [Suspect]
     Dates: start: 20080101, end: 20090101

REACTIONS (7)
  - DIZZINESS [None]
  - DYSPEPSIA [None]
  - FALL [None]
  - HEAD INJURY [None]
  - HYPERCALCAEMIA [None]
  - HYPOKALAEMIA [None]
  - STRESS [None]
